FAERS Safety Report 7301169-1 (Version None)
Quarter: 2011Q1

REPORT INFORMATION
  Report Type: 
  Country: None (occurrence: None)
  Receive Date: 20110218
  Receipt Date: 20101108
  Transmission Date: 20110831
  Serious: No
  Sender: FDA-Public Use
  Company Number: US-BRISTOL-MYERS SQUIBB COMPANY-15326820

PATIENT
  Age: 10 Year
  Sex: Male

DRUGS (1)
  1. ABILIFY [Suspect]

REACTIONS (2)
  - ACCIDENTAL EXPOSURE [None]
  - EYE IRRITATION [None]
